FAERS Safety Report 26127001 (Version 1)
Quarter: 2025Q4

REPORT INFORMATION
  Report Type: Spontaneous
  Country: US (occurrence: US)
  Receive Date: 20251205
  Receipt Date: 20251205
  Transmission Date: 20260117
  Serious: No
  Sender: PRIMUS PHARMACEUTICALS
  Company Number: US-PRIMUS-2025-US-032053

PATIENT
  Age: 21 Year
  Sex: Male

DRUGS (1)
  1. IMPOYZ [Suspect]
     Active Substance: CLOBETASOL PROPIONATE
     Indication: Product used for unknown indication
     Dosage: APPLY TOPICALLY TO AFFECTED AREAS UNTIL CLEARED. USE TWO WEEKS ON TWO WEEKS OFF.
     Route: 061
     Dates: start: 20250118

REACTIONS (2)
  - Product dose omission issue [Unknown]
  - Pain [Unknown]
